FAERS Safety Report 7357754-4 (Version None)
Quarter: 2011Q1

REPORT INFORMATION
  Report Type: 
  Country: None (occurrence: None)
  Receive Date: 20110317
  Receipt Date: 20110307
  Transmission Date: 20110831
  Serious: Yes (Other)
  Sender: FDA-Public Use
  Company Number: US-AMGEN-USASP2011013138

PATIENT
  Age: 84 Year
  Sex: Male

DRUGS (14)
  1. STOOL SOFTENER [Concomitant]
  2. ALLOPURINOL [Concomitant]
  3. SENSIPAR [Suspect]
     Indication: HYPERPARATHYROIDISM PRIMARY
     Dosage: 180 MG, UNK
  4. SENSIPAR [Suspect]
     Dosage: 120 MG, QD
  5. SENSIPAR [Suspect]
     Dosage: 60 MG, UNK
  6. COMPAZINE [Concomitant]
  7. AMITRIPTYLINE HCL [Concomitant]
  8. PLAVIX [Concomitant]
  9. BOOST [Concomitant]
  10. MEVACOR [Concomitant]
  11. NITROSTAT [Concomitant]
  12. EPOGEN [Suspect]
  13. ATENOLOL [Concomitant]
  14. OMEGA 3                            /00931501/ [Concomitant]

REACTIONS (3)
  - BLOOD CALCIUM INCREASED [None]
  - BLOOD PARATHYROID HORMONE INCREASED [None]
  - VOMITING [None]
